FAERS Safety Report 5717477-1 (Version None)
Quarter: 2008Q2

REPORT INFORMATION
  Report Type: 
  Country: None (occurrence: None)
  Receive Date: 20080424
  Receipt Date: 20080424
  Transmission Date: 20081010
  Serious: Yes (Hospitalization)
  Sender: FDA-Public Use
  Company Number: None

PATIENT
  Sex: Male
  Weight: 68 kg

DRUGS (2)
  1. CISPLATIN [Suspect]
     Dosage: 135 MG
     Dates: end: 20080303
  2. TAXOTERE [Suspect]
     Dosage: 135 MG
     Dates: end: 20080303

REACTIONS (2)
  - CONFUSIONAL STATE [None]
  - DEHYDRATION [None]
